FAERS Safety Report 4589839-X (Version None)
Quarter: 2005Q1

REPORT INFORMATION
  Report Type: 
  Country: None (occurrence: None)
  Receive Date: 20050223
  Receipt Date: 20050215
  Transmission Date: 20050727
  Serious: Yes (Death)
  Sender: FDA-Public Use
  Company Number: RU-ABBOTT-05P-251-0291395-00

PATIENT
  Age: 65 Year
  Sex: Female

DRUGS (1)
  1. TRANDOLAPRIL [Suspect]
     Indication: DRUG USE FOR UNKNOWN INDICATION

REACTIONS (3)
  - CHOLELITHIASIS [None]
  - PANCREATIC DUCT OBSTRUCTION [None]
  - PANCREATITIS NECROTISING [None]
